FAERS Safety Report 7232680-X (Version None)
Quarter: 2011Q1

REPORT INFORMATION
  Report Type: 
  Country: None (occurrence: None)
  Receive Date: 20110106
  Receipt Date: 20101221
  Transmission Date: 20110831
  Serious: Yes (Hospitalization)
  Sender: FDA-Public Use
  Company Number: AUR-APL-2010-03221

PATIENT
  Age: 59 Year
  Sex: Male

DRUGS (3)
  1. AMLODIPINE [Suspect]
  2. CELECOXIB [Suspect]
  3. BENAZEPRIL [Suspect]

REACTIONS (2)
  - MYALGIA [None]
  - DRUG RASH WITH EOSINOPHILIA AND SYSTEMIC SYMPTOMS [None]
